FAERS Safety Report 4632552-0 (Version None)
Quarter: 2005Q2

REPORT INFORMATION
  Report Type: 
  Country: None (occurrence: None)
  Receive Date: 20050411
  Receipt Date: 20050127
  Transmission Date: 20051028
  Serious: Yes (Hospitalization)
  Sender: FDA-Public Use
  Company Number: DE-MERCK-0501DEU00283

PATIENT
  Age: 47 Year
  Sex: Male
  Weight: 71 kg

DRUGS (8)
  1. VIOXX [Suspect]
     Indication: RHEUMATOID ARTHRITIS
     Route: 048
     Dates: start: 20020601, end: 20030901
  2. VIOXX [Suspect]
     Route: 048
     Dates: start: 20020101, end: 20020601
  3. METHOTREXATE [Concomitant]
     Indication: RHEUMATOID ARTHRITIS
     Route: 048
     Dates: start: 20020701
  4. PREDNISOLONE [Concomitant]
     Indication: RHEUMATOID ARTHRITIS
     Route: 048
     Dates: start: 20020701
  5. CALCIUM CARBONATE AND CHOLECALCIFEROL [Concomitant]
     Route: 065
  6. CELECOXIB [Concomitant]
     Route: 048
     Dates: start: 20010101
  7. FOSAMAX [Concomitant]
     Indication: OSTEOPOROSIS
     Route: 048
     Dates: start: 20030601
  8. FOLIC ACID [Concomitant]
     Indication: RHEUMATOID ARTHRITIS
     Route: 048
     Dates: start: 20020701

REACTIONS (3)
  - ANGINA PECTORIS [None]
  - BUNDLE BRANCH BLOCK LEFT [None]
  - LEFT VENTRICULAR FAILURE [None]
